FAERS Safety Report 5167771-0 (Version None)
Quarter: 2006Q4

REPORT INFORMATION
  Report Type: 
  Country: None (occurrence: None)
  Receive Date: 20061204
  Receipt Date: 20061204
  Transmission Date: 20070319
  Serious: Yes (Other)
  Sender: FDA-Public Use
  Company Number: None

PATIENT
  Sex: Female
  Weight: 65.318 kg

DRUGS (2)
  1. EXPECTA LIPIL   MEAD JOHNSON + CO. [Suspect]
     Indication: PRENATAL CARE
     Dosage: 1 SOFT GEL  1 TIME PO
     Route: 048
     Dates: start: 20061203, end: 20061203
  2. EXPECTA LIPIL   MEAD JOHNSON + CO. [Suspect]
     Indication: SUPPLEMENTATION THERAPY
     Dosage: 1 SOFT GEL  1 TIME PO
     Route: 048
     Dates: start: 20061203, end: 20061203

REACTIONS (4)
  - DIARRHOEA [None]
  - ERUCTATION [None]
  - FLATULENCE [None]
  - MUSCLE SPASMS [None]
